FAERS Safety Report 7953779-6 (Version None)
Quarter: 2011Q4

REPORT INFORMATION
  Report Type: 
  Country: None (occurrence: None)
  Receive Date: 20111129
  Receipt Date: 20111118
  Transmission Date: 20120403
  Serious: Yes (Hospitalization, Other)
  Sender: FDA-Public Use
  Company Number: 2011P1011355

PATIENT
  Age: 15 Year
  Sex: Male

DRUGS (1)
  1. MORPHINE [Suspect]
     Indication: INTENTIONAL DRUG MISUSE
     Dosage: X1; PO
     Route: 048

REACTIONS (2)
  - BRAIN DEATH [None]
  - SELF-MEDICATION [None]
